FAERS Safety Report 9018715 (Version 1)
Quarter: 2013Q1

REPORT INFORMATION
  Report Type: Spontaneous
  Country: EC (occurrence: EC)
  Receive Date: 20130118
  Receipt Date: 20130118
  Transmission Date: 20140127
  Serious: Yes (Death)
  Sender: FDA-Public Use
  Company Number: PHHY2013EC004299

PATIENT
  Sex: Female

DRUGS (3)
  1. EXFORGE [Suspect]
     Indication: HYPERTENSION
     Dosage: 1 DF (160 MG VALS AND 5 MG AMLO, QD
     Route: 048
     Dates: start: 20110820
  2. PREDNICORTEN [Concomitant]
     Indication: RENAL DISORDER
     Dosage: 0.5 DF, QD
     Route: 048
  3. EUTIROX [Concomitant]
     Indication: THYROID DISORDER
     Dosage: 0.5 DF, QD
     Route: 048

REACTIONS (1)
  - Cerebrovascular accident [Fatal]
